FAERS Safety Report 6147671-X (Version None)
Quarter: 2009Q2

REPORT INFORMATION
  Report Type: 
  Country: None (occurrence: None)
  Receive Date: 20090408
  Receipt Date: 20090406
  Transmission Date: 20091009
  Serious: Yes (Death, Hospitalization, Other)
  Sender: FDA-Public Use
  Company Number: PHHY2009BR13104

PATIENT
  Age: 83 Year
  Sex: Female

DRUGS (1)
  1. DIOVAN [Suspect]

REACTIONS (4)
  - DEATH [None]
  - HAEMORRHAGE [None]
  - MOUTH HAEMORRHAGE [None]
  - PAIN IN EXTREMITY [None]
